FAERS Safety Report 18263240 (Version 5)
Quarter: 2021Q1

REPORT INFORMATION
  Report Type: Other
  Country: JP (occurrence: JP)
  Receive Date: 20200914
  Receipt Date: 20210312
  Transmission Date: 20210419
  Serious: Yes (Death, Hospitalization, Other)
  Sender: FDA-Public Use
  Company Number: JP-ROCHE-2676892

PATIENT
  Age: 67 Year
  Sex: Male
  Weight: 55 kg

DRUGS (11)
  1. CARBOPLATIN. [Concomitant]
     Active Substance: CARBOPLATIN
     Indication: NON-SMALL CELL LUNG CANCER
     Dosage: DOSAGE IS UNCERTAIN.?AUC=6
     Route: 041
     Dates: start: 20191101, end: 20200108
  2. TAPENTA [Concomitant]
     Active Substance: TAPENTADOL HYDROCHLORIDE
     Dosage: AFTER THE SUPPER
     Route: 048
     Dates: start: 20180607
  3. ATEZOLIZUMAB. [Suspect]
     Active Substance: ATEZOLIZUMAB
     Indication: NON-SMALL CELL LUNG CANCER
     Dosage: ON 06/JAN/2021, MOST RECENT DOSE
     Route: 041
     Dates: start: 20191101
  4. TAPENTA [Concomitant]
     Active Substance: TAPENTADOL HYDROCHLORIDE
     Indication: CANCER PAIN
     Dosage: AFTER THE BREAKFAST
     Route: 048
     Dates: start: 20180607
  5. CALONAL [Concomitant]
     Active Substance: ACETAMINOPHEN
     Indication: CANCER PAIN
     Route: 048
     Dates: start: 20210102
  6. LIXIANA OD [Suspect]
     Active Substance: EDOXABAN TOSYLATE
     Indication: THROMBOSIS PROPHYLAXIS
     Dosage: AFTER THE BREAKFAST?ON 04/FEB/2021, MOST RECENT DOSE
     Route: 048
     Dates: start: 20180412
  7. OXINORM [OXYCODONE HYDROCHLORIDE] [Concomitant]
     Active Substance: OXYCODONE HYDROCHLORIDE
     Indication: CANCER PAIN
     Dosage: AS REQUIRED?SINGLE USE AT PAIN
     Route: 048
     Dates: start: 20210106
  8. CELECOXIB. [Concomitant]
     Active Substance: CELECOXIB
     Indication: CANCER PAIN
     Dosage: AFTER THE MEAL IN THE MORNING AND EVENING
     Route: 048
     Dates: start: 20161018
  9. TAKECAB [Concomitant]
     Active Substance: VONOPRAZAN FUMARATE
     Indication: PROPHYLAXIS AGAINST GASTROINTESTINAL ULCER
     Dosage: AFTER THE BREAKFAST
     Route: 048
     Dates: start: 20170119
  10. BEVACIZUMAB. [Suspect]
     Active Substance: BEVACIZUMAB
     Indication: NON-SMALL CELL LUNG CANCER
     Dosage: ON 06/JAN/2021, MOST RECENT DOSE
     Route: 041
     Dates: start: 20191101
  11. PACLITAXEL. [Concomitant]
     Active Substance: PACLITAXEL
     Indication: NON-SMALL CELL LUNG CANCER
     Dosage: DOSAGE IS UNCERTAIN.
     Route: 041
     Dates: start: 20191101, end: 20200108

REACTIONS (5)
  - Upper gastrointestinal haemorrhage [Not Recovered/Not Resolved]
  - Lung adenocarcinoma [Fatal]
  - General physical health deterioration [Not Recovered/Not Resolved]
  - Osteonecrosis of jaw [Unknown]
  - Adrenal disorder [Recovering/Resolving]

NARRATIVE: CASE EVENT DATE: 20200701
